FAERS Safety Report 5212981-7 (Version None)
Quarter: 2007Q1

REPORT INFORMATION
  Report Type: 
  Country: None (occurrence: None)
  Receive Date: 20070117
  Receipt Date: 20070102
  Transmission Date: 20070707
  Serious: Yes (Hospitalization)
  Sender: FDA-Public Use
  Company Number: 2007-152479-NL

PATIENT
  Age: 28 Year
  Sex: Female
  Weight: 90.7 kg

DRUGS (1)
  1. NUVARING [Suspect]
     Indication: CONTRACEPTION
     Dosage: VAGINAL, 3 WKS IN, 1 WK OUT
     Route: 067
     Dates: start: 20060901

REACTIONS (3)
  - BLOOD URINE PRESENT [None]
  - HYPERSENSITIVITY [None]
  - URINARY TRACT INFECTION [None]
